FAERS Safety Report 8194676-3 (Version None)
Quarter: 2012Q1

REPORT INFORMATION
  Report Type: 
  Country: None (occurrence: None)
  Receive Date: 20120308
  Receipt Date: 20110119
  Transmission Date: 20120608
  Serious: No
  Sender: FDA-Public Use
  Company Number: US-GLAXOSMITHKLINE-A0907333A

PATIENT
  Sex: Male

DRUGS (1)
  1. NICORETTE [Suspect]
     Indication: EX-TOBACCO USER
     Route: 002
     Dates: start: 20101001, end: 20110101

REACTIONS (7)
  - NAUSEA [None]
  - DRY MOUTH [None]
  - ABDOMINAL DISCOMFORT [None]
  - AGEUSIA [None]
  - HICCUPS [None]
  - DIZZINESS [None]
  - OBSESSIVE THOUGHTS [None]
